FAERS Safety Report 11324108 (Version 1)
Quarter: 2015Q3

REPORT INFORMATION
  Report Type: Spontaneous
  Country: US (occurrence: US)
  Receive Date: 20150730
  Receipt Date: 20150730
  Transmission Date: 20151125
  Serious: Yes (Other)
  Sender: FDA-Public Use
  Company Number: US-SHIRE-US201508708

PATIENT
  Sex: Male

DRUGS (1)
  1. VYVANSE [Suspect]
     Active Substance: LISDEXAMFETAMINE DIMESYLATE
     Indication: PRODUCT USED FOR UNKNOWN INDICATION
     Dosage: UNK, UNKNOWN
     Route: 048

REACTIONS (14)
  - Hostility [Unknown]
  - Crying [Unknown]
  - Mood altered [Unknown]
  - Suspiciousness [Unknown]
  - Tic [Unknown]
  - Performance status decreased [Unknown]
  - Anger [Unknown]
  - Drug dose omission [Unknown]
  - Hallucination, visual [Unknown]
  - Abnormal behaviour [Unknown]
  - Educational problem [Unknown]
  - Emotional distress [Unknown]
  - Suicidal ideation [Unknown]
  - Nervousness [Unknown]

NARRATIVE: CASE EVENT DATE: 2014
